FAERS Safety Report 7932063 (Version 3)
Quarter: 2013Q2

REPORT INFORMATION
  Report Type: Spontaneous
  Country: US (occurrence: None)
  Receive Date: 20110415
  Receipt Date: 20130604
  Transmission Date: 20140414
  Serious: Yes (Life-Threatening, Hospitalization, Other)
  Sender: FDA-Public Use
  Company Number: AUR-APL-2011-01071

PATIENT
  Age: 54 Year
  Sex: Male

DRUGS (7)
  1. CEFAZOLIN (CEFAZOLIN) [Suspect]
     Indication: ANTIBIOTIC PROPHYLAXIS
  2. COLCHICINE [Concomitant]
  3. METOPROLOL (METOPROLOL) [Concomitant]
  4. LISINOPRIL (LISINOPRIL) [Concomitant]
  5. ASPIRIN (ACETYLSALICYLIC ACID) [Concomitant]
  6. FERROUS SULFATE (FERROUS SULFATE) [Concomitant]
  7. WARFARIN (WARFARIN) [Concomitant]

REACTIONS (13)
  - GOUT [None]
  - CONDITION AGGRAVATED [None]
  - BLOOD PRESSURE DIASTOLIC DECREASED [None]
  - JAUNDICE [None]
  - CONJUNCTIVAL PALLOR [None]
  - MUCOSAL DRYNESS [None]
  - HAEMATOCRIT DECREASED [None]
  - BLOOD SODIUM DECREASED [None]
  - BLOOD UREA INCREASED [None]
  - BLOOD CREATININE INCREASED [None]
  - BLOOD BILIRUBIN INCREASED [None]
  - CLOSTRIDIUM DIFFICILE COLITIS [None]
  - PSEUDOMEMBRANOUS COLITIS [None]
